FAERS Safety Report 23887337 (Version 1)
Quarter: 2024Q2

REPORT INFORMATION
  Report Type: Spontaneous
  Country: PT (occurrence: PT)
  Receive Date: 20240523
  Receipt Date: 20240523
  Transmission Date: 20240716
  Serious: Yes (Other)
  Sender: FDA-Public Use
  Company Number: PT-HALEON-2175983

PATIENT
  Age: 48 Year
  Sex: Male

DRUGS (1)
  1. IBUPROFEN [Suspect]
     Active Substance: IBUPROFEN
     Indication: Pyrexia

REACTIONS (6)
  - Rhabdomyolysis [Unknown]
  - Abdominal pain [Unknown]
  - Myalgia [Unknown]
  - Chromaturia [Unknown]
  - Proteinuria [Unknown]
  - Haemoglobinuria [Unknown]
